FAERS Safety Report 7414198-4 (Version None)
Quarter: 2011Q2

REPORT INFORMATION
  Report Type: 
  Country: None (occurrence: None)
  Receive Date: 20110414
  Receipt Date: 20110408
  Transmission Date: 20111010
  Serious: Yes (Other)
  Sender: FDA-Public Use
  Company Number: DE-PFIZER INC-2011077778

PATIENT
  Sex: Female

DRUGS (2)
  1. DOSTINEX [Suspect]
     Indication: PROLACTINOMA
  2. STANGYL [Concomitant]
     Dosage: UNK

REACTIONS (3)
  - ISCHAEMIC STROKE [None]
  - CEREBRAL INFARCTION [None]
  - THROMBOSIS [None]
